FAERS Safety Report 16993224 (Version 1)
Quarter: 2019Q4

REPORT INFORMATION
  Report Type: Spontaneous
  Country: US (occurrence: US)
  Receive Date: 20191104
  Receipt Date: 20191104
  Transmission Date: 20200122
  Serious: Yes (Other)
  Sender: FDA-Public Use
  Company Number: None

PATIENT
  Age: 72 Year
  Sex: Male
  Weight: 63 kg

DRUGS (1)
  1. CLONAZEPAM ).5MG TAB [Suspect]
     Active Substance: CLONAZEPAM
     Indication: ANXIETY
     Dosage: ?          QUANTITY:1 TABLET(S);?
     Route: 048

REACTIONS (9)
  - Toothache [None]
  - Gingival pain [None]
  - Bruxism [None]
  - Chills [None]
  - Tremor [None]
  - Hyperhidrosis [None]
  - Pruritus [None]
  - Incorrect dose administered [None]
  - Headache [None]

NARRATIVE: CASE EVENT DATE: 20191103
